FAERS Safety Report 7218733-0 (Version None)
Quarter: 2011Q1

REPORT INFORMATION
  Report Type: 
  Country: None (occurrence: None)
  Receive Date: 20110110
  Receipt Date: 20100219
  Transmission Date: 20110831
  Serious: No
  Sender: FDA-Public Use
  Company Number: US-ABBOTT-10P-163-0628550-00

PATIENT
  Sex: Female

DRUGS (8)
  1. FIORICET [Concomitant]
     Indication: PRODUCT USED FOR UNKNOWN INDICATION
  2. VICODIN [Suspect]
     Indication: DYSMENORRHOEA
  3. VICODIN HP [Suspect]
     Indication: ANKYLOSING SPONDYLITIS
  4. VICODIN HP [Suspect]
     Indication: DYSMENORRHOEA
  5. VICODIN HP [Suspect]
     Indication: PAIN MANAGEMENT
     Dates: start: 20060101
  6. AUGMENTIN XR [Suspect]
     Indication: LYME DISEASE
     Dates: start: 20091001, end: 20091201
  7. VICODIN [Suspect]
     Indication: PAIN MANAGEMENT
     Dates: end: 20060101
  8. VICODIN HP [Suspect]
     Indication: PAIN

REACTIONS (8)
  - ANKYLOSING SPONDYLITIS [None]
  - VOMITING [None]
  - MALAISE [None]
  - DIARRHOEA [None]
  - LYME DISEASE [None]
  - PRODUCT ODOUR ABNORMAL [None]
  - PAIN [None]
  - GASTRIC ULCER [None]
